FAERS Safety Report 22969309 (Version 2)
Quarter: 2025Q2

REPORT INFORMATION
  Report Type: Spontaneous
  Country: US (occurrence: US)
  Receive Date: 20230922
  Receipt Date: 20250508
  Transmission Date: 20250716
  Serious: No
  Sender: BIOGEN
  Company Number: US-BIOGEN-2023BI01221952

PATIENT
  Age: 49 Year
  Sex: Male

DRUGS (2)
  1. VUMERITY [Suspect]
     Active Substance: DIROXIMEL FUMARATE
     Indication: Multiple sclerosis
     Route: 050
     Dates: start: 20230805
  2. VUMERITY [Suspect]
     Active Substance: DIROXIMEL FUMARATE
     Route: 050
     Dates: start: 20230810

REACTIONS (3)
  - Neurogenic bladder [Unknown]
  - Diarrhoea [Recovered/Resolved]
  - Rash macular [Unknown]

NARRATIVE: CASE EVENT DATE: 20230801
